FAERS Safety Report 8432066 (Version 2)
Quarter: 2012Q4

REPORT INFORMATION
  Report Type: 
  Country: GB (occurrence: GB)
  Receive Date: 20120229
  Receipt Date: 20121204
  Transmission Date: 20130627
  Serious: Yes (Death, Other)
  Sender: FDA-Public Use
  Company Number: GB-RANBAXY-2012RR-52879

PATIENT
  Age: 89 Year
  Sex: Female

DRUGS (4)
  1. FLUOXETINE [Suspect]
     Indication: PRODUCT USED FOR UNKNOWN INDICATION
     Dosage: 20 mg/day
     Route: 048
  2. CLARITHROMYCIN [Interacting]
     Indication: RESPIRATORY TRACT INFECTION
     Dosage: UNK
     Route: 048
  3. TAZOBACTAM [Concomitant]
     Indication: URINARY TRACT INFECTION
     Dosage: UNK
     Route: 042
  4. PIPERACILLIN [Concomitant]
     Indication: URINARY TRACT INFECTION
     Dosage: UNK
     Route: 042

REACTIONS (2)
  - Serotonin syndrome [Recovering/Resolving]
  - Drug interaction [Recovered/Resolved]
